FAERS Safety Report 17072987 (Version 1)
Quarter: 2019Q4

REPORT INFORMATION
  Report Type: Spontaneous
  Country: US (occurrence: US)
  Receive Date: 20191125
  Receipt Date: 20191125
  Transmission Date: 20200122
  Serious: No
  Sender: FDA-Public Use
  Company Number: US-BAUSCH-BL-2019-061448

PATIENT
  Sex: Female

DRUGS (1)
  1. LUMIFY [Suspect]
     Active Substance: BRIMONIDINE TARTRATE
     Indication: PRODUCT USED FOR UNKNOWN INDICATION
     Dosage: ONLY USED THESE DROPS ONCE A DAY, AND VERY SPARINGLY
     Route: 065

REACTIONS (3)
  - Abnormal sensation in eye [Unknown]
  - Eye irritation [Unknown]
  - Eye pain [Unknown]
